FAERS Safety Report 22322842 (Version 1)
Quarter: 2023Q2

REPORT INFORMATION
  Report Type: Spontaneous
  Country: US (occurrence: None)
  Receive Date: 20230516
  Receipt Date: 20230516
  Transmission Date: 20230722
  Serious: No
  Sender: FDA-Public Use
  Company Number: US-Axsome Therapeutics, Inc.-AXS202209-000040

PATIENT
  Sex: Female

DRUGS (14)
  1. SUNOSI [Suspect]
     Active Substance: SOLRIAMFETOL
     Indication: Narcolepsy
     Route: 048
  2. SUNOSI [Suspect]
     Active Substance: SOLRIAMFETOL
     Indication: Cataplexy
  3. XYREM [Suspect]
     Active Substance: SODIUM OXYBATE
     Indication: Narcolepsy
  4. XYREM [Suspect]
     Active Substance: SODIUM OXYBATE
     Indication: Cataplexy
  5. PRAVASTATIN [Concomitant]
     Active Substance: PRAVASTATIN
     Dates: start: 20171222
  6. LOSARTAN [Concomitant]
     Active Substance: LOSARTAN
     Dates: start: 20180917
  7. LOSARTAN [Concomitant]
     Active Substance: LOSARTAN
  8. CARVEDILOL [Concomitant]
     Active Substance: CARVEDILOL
     Dates: start: 20191218
  9. MIRAPEX [Concomitant]
     Active Substance: PRAMIPEXOLE DIHYDROCHLORIDE
     Dates: start: 20200701
  10. WAKIX [Concomitant]
     Active Substance: PITOLISANT HYDROCHLORIDE
  11. PROVIGIL [Concomitant]
     Active Substance: MODAFINIL
  12. CEVIMELINE [Concomitant]
     Active Substance: CEVIMELINE
  13. MELOXICAM [Concomitant]
     Active Substance: MELOXICAM
     Indication: Ligament sprain
  14. IBUPROFEN [Concomitant]
     Active Substance: IBUPROFEN
     Indication: Wrist fracture

REACTIONS (1)
  - Drug ineffective [Unknown]
